FAERS Safety Report 16573592 (Version 1)
Quarter: 2019Q3

REPORT INFORMATION
  Report Type: Spontaneous
  Country: US (occurrence: US)
  Receive Date: 20190715
  Receipt Date: 20190715
  Transmission Date: 20191004
  Serious: No
  Sender: FDA-Public Use
  Company Number: US-MYLANLABS-2019M1060193

PATIENT
  Sex: Female
  Weight: 65 kg

DRUGS (2)
  1. FENTANYL TRANSDERMAL SYSTEM [Suspect]
     Active Substance: FENTANYL
     Indication: BACK INJURY
     Dosage: UNK
     Route: 062
  2. FENTANYL TRANSDERMAL SYSTEM [Suspect]
     Active Substance: FENTANYL
     Indication: NECK INJURY

REACTIONS (4)
  - Product adhesion issue [Unknown]
  - Product label issue [Unknown]
  - Wrong technique in product usage process [Unknown]
  - Product packaging quantity issue [Unknown]
